FAERS Safety Report 6979470 (Version 5)
Quarter: 2013Q3

REPORT INFORMATION
  Report Type: Spontaneous
  Country: US (occurrence: US)
  Receive Date: 20090428
  Receipt Date: 20130814
  Transmission Date: 20140515
  Serious: Yes (Other)
  Sender: FDA-Public Use
  Company Number: US-ROCHE-610571

PATIENT
  Age: 17 Year
  Sex: Female
  Weight: 48.5 kg

DRUGS (1)
  1. ACCUTANE [Suspect]
     Indication: ACNE
     Dosage: ACCUTANE 40 MG MONDAY,WEDNESDAY AND FRIDAY.
     Route: 065
     Dates: start: 20020220, end: 20020320

REACTIONS (7)
  - Cholangitis sclerosing [Unknown]
  - Inflammatory bowel disease [Unknown]
  - Colitis ulcerative [Recovered/Resolved]
  - Pouchitis [Unknown]
  - Enteritis [Unknown]
  - Abnormal faeces [Unknown]
  - Aphthous stomatitis [Unknown]
